FAERS Safety Report 7242352-3 (Version None)
Quarter: 2011Q1

REPORT INFORMATION
  Report Type: 
  Country: None (occurrence: None)
  Receive Date: 20110125
  Receipt Date: 20091020
  Transmission Date: 20110831
  Serious: No
  Sender: FDA-Public Use
  Company Number: 2009BI034196

PATIENT
  Age: 64 Year
  Sex: Female

DRUGS (2)
  1. AVONEX [Concomitant]
     Indication: MULTIPLE SCLEROSIS
     Route: 030
  2. TYSABRI [Suspect]
     Indication: MULTIPLE SCLEROSIS
     Route: 042
     Dates: start: 20091006, end: 20091006

REACTIONS (4)
  - INSOMNIA [None]
  - HEADACHE [None]
  - ANXIETY [None]
  - PAIN IN EXTREMITY [None]
